FAERS Safety Report 23644224 (Version 1)
Quarter: 2024Q1

REPORT INFORMATION
  Report Type: Spontaneous
  Country: US (occurrence: US)
  Receive Date: 20240318
  Receipt Date: 20240318
  Transmission Date: 20240410
  Serious: No
  Sender: FDA-Public Use
  Company Number: US-ABBVIE-5681083

PATIENT
  Sex: Female

DRUGS (2)
  1. HUMIRA [Suspect]
     Active Substance: ADALIMUMAB
     Indication: Product used for unknown indication
     Route: 058
  2. HUMIRA [Suspect]
     Active Substance: ADALIMUMAB
     Dosage: DOSE INCREASED
     Route: 058

REACTIONS (3)
  - Skin disorder [Not Recovered/Not Resolved]
  - Psoriasis [Not Recovered/Not Resolved]
  - Arthralgia [Not Recovered/Not Resolved]
